FAERS Safety Report 7785401-6 (Version None)
Quarter: 2011Q3

REPORT INFORMATION
  Report Type: 
  Country: None (occurrence: None)
  Receive Date: 20110929
  Receipt Date: 20110923
  Transmission Date: 20111222
  Serious: Yes (Hospitalization)
  Sender: FDA-Public Use
  Company Number: US-ABBOTT-11P-163-0857372-00

PATIENT
  Sex: Female
  Weight: 36.6 kg

DRUGS (15)
  1. HUMIRA [Suspect]
     Indication: PRODUCT USED FOR UNKNOWN INDICATION
     Dates: start: 20090218
  2. MULTI-VITAMINS [Concomitant]
     Indication: PRODUCT USED FOR UNKNOWN INDICATION
  3. ACETAMINOPHEN [Concomitant]
     Indication: PRODUCT USED FOR UNKNOWN INDICATION
  4. PEPTAMEN [Concomitant]
     Indication: ENTERAL NUTRITION
  5. HUMIRA [Suspect]
  6. FISH OIL [Concomitant]
     Indication: PRODUCT USED FOR UNKNOWN INDICATION
  7. FOLIC ACID [Concomitant]
     Indication: PRODUCT USED FOR UNKNOWN INDICATION
  8. LANSOPRAZOLE [Concomitant]
     Indication: PRODUCT USED FOR UNKNOWN INDICATION
  9. ANTIBIOTICS [Concomitant]
     Indication: INFLAMMATORY BOWEL DISEASE
  10. REMICADE [Suspect]
     Indication: CROHN'S DISEASE
  11. FERROUS SULFATE TAB [Concomitant]
     Indication: PRODUCT USED FOR UNKNOWN INDICATION
  12. HUMIRA [Suspect]
  13. REMICADE [Suspect]
     Indication: INFLAMMATORY BOWEL DISEASE
     Route: 042
     Dates: start: 20080205, end: 20090114
  14. METHOTREXATE [Suspect]
     Indication: PRODUCT USED FOR UNKNOWN INDICATION
  15. CHOLECALCIFEROL [Concomitant]
     Indication: PRODUCT USED FOR UNKNOWN INDICATION

REACTIONS (6)
  - VOMITING [None]
  - DIARRHOEA [None]
  - ABDOMINAL PAIN UPPER [None]
  - CROHN'S DISEASE [None]
  - PYREXIA [None]
  - HAEMATOCHEZIA [None]
